FAERS Safety Report 15203911 (Version 2)
Quarter: 2018Q3

REPORT INFORMATION
  Report Type: Report from Study
  Country: DE (occurrence: DE)
  Receive Date: 20180726
  Receipt Date: 20180731
  Transmission Date: 20181010
  Serious: Yes (Other)
  Sender: FDA-Public Use
  Company Number: DE-VANDA PHARMACEUTICALS, INC-2017TASDE001748

PATIENT

DRUGS (2)
  1. CELECOXIB. [Interacting]
     Active Substance: CELECOXIB
     Indication: PAIN
     Dosage: UNK, BID
     Dates: start: 20170804
  2. HETLIOZ [Suspect]
     Active Substance: TASIMELTEON
     Indication: CIRCADIAN RHYTHM SLEEP DISORDER
     Dosage: 20 MG, ONCE PER DAY
     Route: 048
     Dates: start: 20161225

REACTIONS (3)
  - Drug effect decreased [Unknown]
  - Ankle fracture [Unknown]
  - Drug interaction [Recovered/Resolved]
